FAERS Safety Report 4899961-6 (Version None)
Quarter: 2006Q1

REPORT INFORMATION
  Report Type: 
  Country: None (occurrence: None)
  Receive Date: 20060131
  Receipt Date: 20060118
  Transmission Date: 20060701
  Serious: Yes (Hospitalization)
  Sender: FDA-Public Use
  Company Number: 2006PV007248

PATIENT
  Age: 51 Year
  Sex: Female
  Weight: 94.8018 kg

DRUGS (10)
  1. BYETTA [Suspect]
     Indication: DIABETES MELLITUS NON-INSULIN-DEPENDENT
     Dosage: 10 MCG, BID; SC; 5 MCG, BID; SC
     Route: 058
     Dates: start: 20051031, end: 20051127
  2. BYETTA [Suspect]
     Indication: DIABETES MELLITUS NON-INSULIN-DEPENDENT
     Dosage: 10 MCG, BID; SC; 5 MCG, BID; SC
     Route: 058
     Dates: start: 20051128, end: 20051230
  3. AVANDAMET [Concomitant]
  4. AMARYL [Concomitant]
  5. STARLIX [Concomitant]
  6. TRAZADONE [Concomitant]
  7. LEXAPRO [Concomitant]
  8. EFFEXOR [Concomitant]
  9. LIPITOR [Concomitant]
  10. TRICOR [Concomitant]

REACTIONS (11)
  - ALANINE AMINOTRANSFERASE INCREASED [None]
  - ANOREXIA [None]
  - ASPARTATE AMINOTRANSFERASE INCREASED [None]
  - BLOOD GLUCOSE INCREASED [None]
  - DIARRHOEA [None]
  - HAEMOGLOBIN DECREASED [None]
  - NAUSEA [None]
  - PANCREATITIS [None]
  - URINARY TRACT INFECTION [None]
  - VOMITING [None]
  - WEIGHT DECREASED [None]
